FAERS Safety Report 10201385 (Version 1)
Quarter: 2014Q2

REPORT INFORMATION
  Report Type: Report from Study
  Country: US (occurrence: US)
  Receive Date: 20140528
  Receipt Date: 20140528
  Transmission Date: 20141212
  Serious: Yes (Other)
  Sender: FDA-Public Use
  Company Number: US-SA-2014SA054749

PATIENT
  Age: 63 Year
  Sex: Female

DRUGS (5)
  1. LANTUS [Suspect]
     Indication: DIABETES MELLITUS
     Dosage: DOSE:140 UNIT(S)
     Route: 065
     Dates: start: 201402
  2. HUMULIN [Concomitant]
     Dosage: 70/30
  3. PLAVIX [Concomitant]
  4. ALL OTHER THERAPEUTIC PRODUCTS [Concomitant]
  5. ALL OTHER THERAPEUTIC PRODUCTS [Concomitant]

REACTIONS (2)
  - Lower respiratory tract infection [Not Recovered/Not Resolved]
  - Cough [Not Recovered/Not Resolved]
